FAERS Safety Report 10264785 (Version 2)
Quarter: 2014Q2

REPORT INFORMATION
  Report Type: Spontaneous
  Country: US (occurrence: US)
  Receive Date: 20140627
  Receipt Date: 20140627
  Transmission Date: 20141212
  Serious: Yes (Hospitalization)
  Sender: FDA-Public Use
  Company Number: US-TARO-2014TAR00039

PATIENT
  Age: 50 Year
  Sex: Female
  Weight: 42.18 kg

DRUGS (3)
  1. WARFARIN SODIUM TABLETS USP 5MG [Suspect]
     Dosage: 5 MG, 1X/DAY
     Route: 048
     Dates: start: 201402
  2. WARFARIN SODIUM TABLETS USP 5MG [Suspect]
     Dosage: 8 MG, 1X/DAY
     Route: 048
     Dates: start: 201402
  3. WARFARIN SODIUM TABLETS USP 1MG [Suspect]
     Dosage: UNK UNK, 1X/DAY
     Route: 048
     Dates: start: 201402

REACTIONS (5)
  - Feeling abnormal [None]
  - Tinnitus [None]
  - Hypoaesthesia [None]
  - Incoherent [None]
  - International normalised ratio fluctuation [Unknown]
